FAERS Safety Report 10586950 (Version 1)
Quarter: 2014Q4

REPORT INFORMATION
  Report Type: Spontaneous
  Country: US (occurrence: None)
  Receive Date: 20141114
  Receipt Date: 20141114
  Transmission Date: 20150529
  Serious: No
  Sender: FDA-Public Use
  Company Number: None

PATIENT
  Age: 6 Year
  Sex: Male
  Weight: 29.48 kg

DRUGS (1)
  1. VYVANSE [Suspect]
     Active Substance: LISDEXAMFETAMINE DIMESYLATE
     Indication: ATTENTION DEFICIT/HYPERACTIVITY DISORDER
     Dosage: 1
     Route: 048

REACTIONS (10)
  - Onychophagia [None]
  - Personality change [None]
  - Depression [None]
  - Product substitution issue [None]
  - Aggression [None]
  - Abnormal behaviour [None]
  - Headache [None]
  - Anger [None]
  - Hypophagia [None]
  - Sleep disorder [None]

NARRATIVE: CASE EVENT DATE: 20140807
